FAERS Safety Report 17552034 (Version 1)
Quarter: 2020Q1

REPORT INFORMATION
  Report Type: Report from Study
  Country: DE (occurrence: DE)
  Receive Date: 20200317
  Receipt Date: 20200317
  Transmission Date: 20200409
  Serious: Yes (Hospitalization, Other)
  Sender: FDA-Public Use
  Company Number: DE-GILEAD-2020-0454936

PATIENT
  Age: 61 Year
  Sex: Male
  Weight: 60 kg

DRUGS (15)
  1. TACROLIMUS. [Concomitant]
     Active Substance: TACROLIMUS
  2. URSOFALK [Concomitant]
     Active Substance: URSODIOL
  3. ATORVASTATIN [Concomitant]
     Active Substance: ATORVASTATIN
  4. SOFOSBUVIR [Suspect]
     Active Substance: SOFOSBUVIR
     Indication: CHRONIC HEPATITIS C
     Dosage: 400 MG, QD
     Route: 048
     Dates: start: 20140401, end: 20140623
  5. VITAMIN D NOS [Concomitant]
     Active Substance: VITAMIN D NOS
  6. LYRICA [Concomitant]
     Active Substance: PREGABALIN
  7. DUODART [Concomitant]
     Active Substance: DUTASTERIDE\TAMSULOSIN
  8. ENTECAVIR. [Concomitant]
     Active Substance: ENTECAVIR
  9. PPI [OMEPRAZOLE] [Concomitant]
     Active Substance: OMEPRAZOLE
     Dosage: 20 MG
  10. CERTICAN [Concomitant]
     Active Substance: EVEROLIMUS
  11. NEXIUM I.V. [Concomitant]
     Active Substance: ESOMEPRAZOLE SODIUM
     Dosage: 20 MG
  12. COPEGUS [Concomitant]
     Active Substance: RIBAVIRIN
     Indication: CHRONIC HEPATITIS C
     Dosage: 1200 MG, QD
     Route: 048
     Dates: start: 20140401, end: 20140623
  13. PEGASYS [Concomitant]
     Active Substance: PEGINTERFERON ALFA-2A
     Indication: CHRONIC HEPATITIS C
     Dosage: 180 UG, Q1WK
     Route: 058
     Dates: start: 20140401, end: 20140623
  14. RAMIPRIL. [Concomitant]
     Active Substance: RAMIPRIL
  15. XIPAMID [Concomitant]
     Active Substance: XIPAMIDE

REACTIONS (1)
  - Bronchial carcinoma [Recovering/Resolving]

NARRATIVE: CASE EVENT DATE: 20191204
